FAERS Safety Report 14228086 (Version 1)
Quarter: 2017Q4

REPORT INFORMATION
  Report Type: Spontaneous
  Country: US (occurrence: US)
  Receive Date: 20171127
  Receipt Date: 20171127
  Transmission Date: 20180321
  Serious: Yes (Other)
  Sender: FDA-Public Use
  Company Number: US-TEVA-2017-US-826223

PATIENT
  Sex: Male

DRUGS (1)
  1. TESTOSTERONE. [Suspect]
     Active Substance: TESTOSTERONE

REACTIONS (6)
  - Cerebrovascular accident [Recovering/Resolving]
  - Migraine [Recovering/Resolving]
  - Blood testosterone increased [Unknown]
  - Myocardial infarction [Unknown]
  - Anxiety [Unknown]
  - Chest pain [Unknown]
